FAERS Safety Report 6047080-8 (Version None)
Quarter: 2009Q1

REPORT INFORMATION
  Report Type: 
  Country: None (occurrence: None)
  Receive Date: 20090122
  Receipt Date: 20090114
  Transmission Date: 20090719
  Serious: Yes (Other)
  Sender: FDA-Public Use
  Company Number: JP-ROCHE-609548

PATIENT
  Sex: Male
  Weight: 25 kg

DRUGS (2)
  1. TAMIFLU [Suspect]
     Indication: INFLUENZA
     Dosage: DRUG: TAMIFLU DRY SYRUP 3%
     Route: 048
     Dates: start: 20081225, end: 20081225
  2. CALONAL [Concomitant]
     Route: 048

REACTIONS (1)
  - ABNORMAL BEHAVIOUR [None]
